FAERS Safety Report 8159655-0 (Version None)
Quarter: 2012Q1

REPORT INFORMATION
  Report Type: 
  Country: None (occurrence: None)
  Receive Date: 20120223
  Receipt Date: 20120216
  Transmission Date: 20120608
  Serious: Yes (Hospitalization)
  Sender: FDA-Public Use
  Company Number: DE-TEVA-323691USA

PATIENT
  Sex: Male
  Weight: 95 kg

DRUGS (11)
  1. BISOPROLOL [Concomitant]
  2. INSULIN HUMAN [Concomitant]
  3. TREANDA [Suspect]
     Route: 042
     Dates: start: 20110826
  4. RAMIPRIL [Concomitant]
  5. TAMSULOSIN HCL [Concomitant]
  6. ACETYLSALICYLIC ACID SRT [Concomitant]
  7. PANTOPRAZOLE [Concomitant]
  8. RITUXIMAB [Suspect]
     Dates: start: 20110921
  9. SIMVASTATIN [Concomitant]
  10. TORSEMIDE [Concomitant]
  11. MIRTAZAPINE [Concomitant]

REACTIONS (1)
  - POLYNEUROPATHY [None]
